FAERS Safety Report 26108193 (Version 2)
Quarter: 2025Q4

REPORT INFORMATION
  Report Type: Spontaneous
  Country: TR (occurrence: TR)
  Receive Date: 20251201
  Receipt Date: 20251202
  Transmission Date: 20260117
  Serious: No
  Sender: PFIZER
  Company Number: TR-PFIZER INC-202500208334

PATIENT
  Age: 35 Year
  Sex: Female

DRUGS (1)
  1. ENBREL [Suspect]
     Active Substance: ETANERCEPT
     Indication: Ankylosing spondylitis
     Dosage: 50 MG

REACTIONS (2)
  - Device failure [Unknown]
  - Drug dose omission by device [Unknown]
